FAERS Safety Report 26207225 (Version 1)
Quarter: 2025Q4

REPORT INFORMATION
  Report Type: Other
  Country: GB (occurrence: GB)
  Receive Date: 20251229
  Receipt Date: 20251229
  Transmission Date: 20260118
  Serious: Yes (Other)
  Sender: STRIDES
  Company Number: None

PATIENT
  Age: 47 Year
  Sex: Male
  Weight: 79 kg

DRUGS (8)
  1. IBUPROFEN [Suspect]
     Active Substance: IBUPROFEN
     Indication: Product used for unknown indication
     Dosage: 400 MILLIGRAM (TABLET)
     Route: 065
     Dates: start: 20251209
  2. THIAMINE [Concomitant]
     Active Substance: THIAMINE
     Indication: Ill-defined disorder
     Dosage: 1 TABLET
     Route: 065
     Dates: start: 20250919, end: 20251017
  3. PROMETHAZINE HYDROCHLORIDE [Concomitant]
     Active Substance: PROMETHAZINE HYDROCHLORIDE
     Indication: Ill-defined disorder
     Dosage: 2 TABLET
     Route: 065
     Dates: start: 20250919, end: 20250924
  4. SALICYLIC ACID [Concomitant]
     Active Substance: SALICYLIC ACID
     Indication: Ill-defined disorder
     Dosage: 1 APPLICATION
     Route: 065
     Dates: start: 20251028, end: 20251125
  5. ZOPICLONE [Concomitant]
     Active Substance: ZOPICLONE
     Indication: Ill-defined disorder
     Dosage: 1 TABLET
     Route: 065
     Dates: start: 20251031, end: 20251031
  6. Supemtek [Concomitant]
     Indication: Ill-defined disorder
     Dosage: 0.5 MILLILITER
     Route: 065
     Dates: start: 20251120, end: 20251120
  7. BECLOMETHASONE DIPROPIONATE\FORMOTEROL FUMARATE [Concomitant]
     Active Substance: BECLOMETHASONE DIPROPIONATE\FORMOTEROL FUMARATE
     Indication: Ill-defined disorder
     Dosage: 1 ACTUATION
     Route: 065
     Dates: start: 20250808
  8. Bibecfo [Concomitant]
     Indication: Ill-defined disorder
     Dosage: 2 ACTUATION
     Route: 065
     Dates: start: 20250811, end: 20251209

REACTIONS (1)
  - Asthma [Recovered/Resolved]
